FAERS Safety Report 4943600-2 (Version None)
Quarter: 2006Q1

REPORT INFORMATION
  Report Type: 
  Country: None (occurrence: None)
  Receive Date: 20060314
  Receipt Date: 20050921
  Transmission Date: 20060701
  Serious: Yes (Hospitalization)
  Sender: FDA-Public Use
  Company Number: US-ABBOTT-05P-163-0311638-01

PATIENT
  Sex: Female
  Weight: 62.879 kg

DRUGS (17)
  1. PIOGLITAZONE HYDROCHLORIDE (BLINDED) [Suspect]
     Indication: DIABETES MELLITUS NON-INSULIN-DEPENDENT
     Route: 048
     Dates: start: 20040707
  2. CLOPIDOGREL BISULFATE [Concomitant]
     Indication: CORONARY ARTERY DISEASE
     Route: 048
     Dates: start: 20010701
  3. PHENYTOIN [Concomitant]
     Indication: CONVULSION
     Route: 048
     Dates: start: 20020901
  4. METFORMIN [Concomitant]
     Indication: DIABETES MELLITUS NON-INSULIN-DEPENDENT
     Route: 048
     Dates: start: 20020401
  5. RABEPRAZOLE SODIUM [Concomitant]
     Indication: OESOPHAGITIS
     Route: 048
     Dates: start: 20020701
  6. CALCIUM WITH VITAMIN D [Concomitant]
     Indication: OSTEOPOROSIS
     Route: 048
     Dates: start: 20040501
  7. NITROGLYCERIN [Concomitant]
     Indication: DRUG USE FOR UNKNOWN INDICATION
     Route: 060
  8. ALENDRONATE SODIUM [Concomitant]
     Indication: OSTEOPOROSIS
     Route: 065
     Dates: start: 20040501
  9. DIOVAN [Concomitant]
     Indication: HYPERTENSION
     Route: 048
     Dates: start: 20041027
  10. ACULAR LS 0.4% [Concomitant]
     Indication: GLAUCOMA
     Route: 062
     Dates: start: 20041021
  11. ZOCOR [Concomitant]
     Indication: HYPERLIPIDAEMIA
     Route: 048
     Dates: start: 20041027
  12. HUMALOG 70/25 [Concomitant]
     Indication: DIABETES MELLITUS NON-INSULIN-DEPENDENT
     Route: 058
     Dates: start: 20050216
  13. TRAVATAN [Concomitant]
     Indication: GLAUCOMA
     Dosage: 1 GTT EACH EYE QHS
     Dates: start: 20041217
  14. REFRESH LIQUIGEL LUBRICANT EYE DROP [Concomitant]
     Indication: DRY EYE
     Dosage: 4 GTT EACH
     Route: 047
     Dates: start: 20030101
  15. MINERAL OIL [Concomitant]
     Indication: CONSTIPATION
     Route: 048
     Dates: start: 20040501
  16. FUROSEMIDE [Concomitant]
     Indication: HYPERTENSION
     Route: 048
     Dates: start: 20050418
  17. MACROGOL [Concomitant]
     Indication: CONSTIPATION
     Route: 048
     Dates: start: 20050613

REACTIONS (10)
  - ANAEMIA [None]
  - ANGIODYSPLASIA [None]
  - CARDIAC MURMUR [None]
  - CONDITION AGGRAVATED [None]
  - DIVERTICULUM [None]
  - FALL [None]
  - FIBROSIS [None]
  - GASTRITIS EROSIVE [None]
  - HAEMORRHAGIC ARTERIOVENOUS MALFORMATION [None]
  - HIATUS HERNIA [None]
